FAERS Safety Report 5696351-3 (Version None)
Quarter: 2008Q2

REPORT INFORMATION
  Report Type: 
  Country: None (occurrence: None)
  Receive Date: 20080407
  Receipt Date: 20080326
  Transmission Date: 20081010
  Serious: Yes (Other)
  Sender: FDA-Public Use
  Company Number: US-PFIZER INC-2008027099

PATIENT
  Sex: Male
  Weight: 63.636 kg

DRUGS (13)
  1. LYRICA [Suspect]
     Indication: FIBROMYALGIA
  2. VALSARTAN [Concomitant]
     Route: 048
  3. HYDROCHLOROTHIAZIDE [Concomitant]
     Route: 048
  4. POTASSIUM CHLORIDE [Concomitant]
     Route: 048
  5. XANAX [Concomitant]
     Route: 048
  6. VOLTAREN [Concomitant]
     Route: 048
  7. MONTELUKAST SODIUM [Concomitant]
     Route: 048
  8. VICODIN [Concomitant]
     Route: 048
  9. TYLENOL (CAPLET) [Concomitant]
     Route: 048
  10. ELAVIL [Concomitant]
     Route: 048
  11. FLEXERIL [Concomitant]
     Route: 048
  12. PAROXETINE HCL [Concomitant]
     Route: 048
  13. GEMFIBROZIL [Concomitant]
     Route: 048

REACTIONS (8)
  - ASTHENIA [None]
  - BLOOD CHOLESTEROL INCREASED [None]
  - HEPATIC ENZYME ABNORMAL [None]
  - ILL-DEFINED DISORDER [None]
  - MUSCLE DISORDER [None]
  - MYALGIA [None]
  - PAIN [None]
  - THROAT TIGHTNESS [None]
